FAERS Safety Report 4290801-5 (Version None)
Quarter: 2004Q1

REPORT INFORMATION
  Report Type: 
  Country: None (occurrence: None)
  Receive Date: 20040206
  Receipt Date: 20040206
  Transmission Date: 20041129
  Serious: Yes (Hospitalization)
  Sender: FDA-Public Use
  Company Number: None

PATIENT
  Age: 90 Year
  Sex: Female
  Weight: 86.1834 kg

DRUGS (5)
  1. ZYPREXA [Suspect]
     Indication: AGITATION
     Dosage: 7.5 MG PO Q HS
     Route: 048
  2. BUSPAR [Suspect]
     Dosage: 15 MG PO BID
  3. CELEBREX [Concomitant]
  4. LEVOXYL [Concomitant]
  5. MACROBID [Concomitant]

REACTIONS (1)
  - DEPRESSED LEVEL OF CONSCIOUSNESS [None]
